FAERS Safety Report 22159081 (Version 6)
Quarter: 2023Q2

REPORT INFORMATION
  Report Type: Spontaneous
  Country: JP (occurrence: JP)
  Receive Date: 20230331
  Receipt Date: 20230525
  Transmission Date: 20230722
  Serious: Yes (Other)
  Sender: FDA-Public Use
  Company Number: JP-002147023-NVSJ2023JP003936

PATIENT
  Age: 69 Year
  Sex: Male

DRUGS (1)
  1. BEOVU [Suspect]
     Active Substance: BROLUCIZUMAB-DBLL
     Indication: Age-related macular degeneration
     Dosage: 6 MG
     Route: 031
     Dates: start: 20221222, end: 20221222

REACTIONS (8)
  - Retinal artery occlusion [Recovered/Resolved]
  - Retinal vein occlusion [Recovered/Resolved]
  - Vitreous opacities [Recovered/Resolved]
  - Retinal vasculitis [Recovered/Resolved]
  - Vitritis [Recovered/Resolved]
  - Cataract [Recovered/Resolved]
  - Retinal exudates [Recovered/Resolved]
  - Blindness [Recovered/Resolved]

NARRATIVE: CASE EVENT DATE: 20230105
